FAERS Safety Report 18613307 (Version 1)
Quarter: 2020Q4

REPORT INFORMATION
  Report Type: Spontaneous
  Country: US (occurrence: US)
  Receive Date: 20201214
  Receipt Date: 20201214
  Transmission Date: 20210114
  Serious: No
  Sender: FDA-Public Use
  Company Number: US-NOVOPROD-697937

PATIENT
  Age: 73 Year
  Sex: Male

DRUGS (1)
  1. LEVEMIR [Suspect]
     Active Substance: INSULIN DETEMIR
     Indication: PRODUCT USED FOR UNKNOWN INDICATION
     Dosage: 7 IU, QD (IN MORNING)
     Route: 058

REACTIONS (7)
  - Condition aggravated [Unknown]
  - Skin burning sensation [Not Recovered/Not Resolved]
  - Memory impairment [Unknown]
  - Nervousness [Unknown]
  - Condition aggravated [Not Recovered/Not Resolved]
  - Product communication issue [Unknown]
  - Malaise [Unknown]

NARRATIVE: CASE EVENT DATE: 2019
